FAERS Safety Report 6442831-2 (Version None)
Quarter: 2009Q4

REPORT INFORMATION
  Report Type: 
  Country: None (occurrence: None)
  Receive Date: 20091112
  Receipt Date: 20091029
  Transmission Date: 20100525
  Serious: Yes (Hospitalization)
  Sender: FDA-Public Use
  Company Number: 2009SP033225

PATIENT
  Age: 38 Year
  Sex: Male

DRUGS (13)
  1. MIRTAZAPINE [Suspect]
     Indication: DRUG USE FOR UNKNOWN INDICATION
     Dosage: 30 MG;QD
     Dates: start: 20090701
  2. ASPIRIN [Concomitant]
  3. ATORVASTATIN [Concomitant]
  4. CLOPIDOGREL [Concomitant]
  5. DOXAZOSIN [Concomitant]
  6. ESOMEPRAZOLE [Concomitant]
  7. EZETIMIBE [Concomitant]
  8. GABAPENTIN [Concomitant]
  9. GLYCERYL TRINITRATE [Concomitant]
  10. LEVEMIR [Concomitant]
  11. QUININE SULPHATE [Concomitant]
  12. RAMIPRIL [Concomitant]
  13. TOPIRAMATE [Concomitant]

REACTIONS (2)
  - PHAEOCHROMOCYTOMA [None]
  - TACHYCARDIA [None]
